FAERS Safety Report 8011445 (Version 3)
Quarter: 2012Q4

REPORT INFORMATION
  Report Type: Report from Study
  Country: FR (occurrence: FR)
  Receive Date: 20110627
  Receipt Date: 20121115
  Transmission Date: 20130627
  Serious: Yes (Hospitalization)
  Sender: FDA-Public Use
  Company Number: FR-ABBOTT-11P-056-0733562-00

PATIENT
  Age: 44 Year
  Sex: Male
  Weight: 55 kg

DRUGS (8)
  1. KALETRA TABLETS [Suspect]
     Indication: HIV INFECTION
     Route: 048
     Dates: start: 20100907
  2. CYAMEMAZINE [Concomitant]
     Indication: DEPRESSION
     Route: 048
     Dates: start: 20040115
  3. MIANSERINE [Concomitant]
     Indication: DEPRESSION
     Route: 048
     Dates: start: 20040115
  4. VENLAFAXINE [Concomitant]
     Indication: DEPRESSION
     Route: 048
     Dates: start: 20040115
  5. ROSUVASTATINE [Concomitant]
     Indication: HYPERLIPIDAEMIA
     Route: 048
     Dates: start: 20070115
  6. BROMAZEPAM [Concomitant]
     Indication: DEPRESSION
     Route: 048
     Dates: start: 20040115
  7. FLUNITRAZEPAM [Concomitant]
     Indication: DEPRESSION
     Route: 048
     Dates: start: 20040115
  8. VELMETIA [Concomitant]
     Indication: TYPE 2 DIABETES MELLITUS
     Route: 048
     Dates: start: 20080615

REACTIONS (1)
  - Pulmonary embolism [Recovered/Resolved]
